FAERS Safety Report 8542509-5 (Version None)
Quarter: 2012Q3

REPORT INFORMATION
  Report Type: 
  Country: None (occurrence: None)
  Receive Date: 20120726
  Receipt Date: 20110802
  Transmission Date: 20120928
  Serious: Yes (Hospitalization)
  Sender: FDA-Public Use
  Company Number: US-ASTRAZENECA-2011SE46055

PATIENT
  Age: 56 Year
  Sex: Female
  Weight: 65.8 kg

DRUGS (6)
  1. MIDRIN [Concomitant]
  2. AMBIEN [Concomitant]
     Indication: SLEEP DISORDER
  3. SEROQUEL [Suspect]
     Indication: BIPOLAR DISORDER
     Route: 048
     Dates: start: 20080101
  4. DILANTIN [Concomitant]
     Indication: CONVULSION
  5. DIOVAN [Concomitant]
     Indication: HYPERTENSION
  6. REGLAN [Concomitant]

REACTIONS (3)
  - AGGRESSION [None]
  - BLOOD SODIUM DECREASED [None]
  - DRUG DOSE OMISSION [None]
